FAERS Safety Report 10722331 (Version 1)
Quarter: 2015Q1

REPORT INFORMATION
  Report Type: Spontaneous
  Country: US (occurrence: US)
  Receive Date: 20150119
  Receipt Date: 20150119
  Transmission Date: 20150721
  Serious: No
  Sender: FDA-Public Use
  Company Number: US-GILEAD-2015-0130997

PATIENT
  Sex: Female

DRUGS (3)
  1. RIBAVIRIN. [Concomitant]
     Active Substance: RIBAVIRIN
     Dosage: 200 MG, BID
     Route: 065
  2. SOVALDI [Suspect]
     Active Substance: SOFOSBUVIR
     Dosage: 1 DF, QD
     Route: 065
     Dates: start: 201408
  3. SOVALDI [Suspect]
     Active Substance: SOFOSBUVIR
     Indication: HEPATITIS C
     Dosage: 2 DF, QD
     Route: 065

REACTIONS (4)
  - Accidental overdose [Unknown]
  - Alopecia [Unknown]
  - Acne [Unknown]
  - Rash [Unknown]

NARRATIVE: CASE EVENT DATE: 201409
